FAERS Safety Report 22161528 (Version 5)
Quarter: 2023Q2

REPORT INFORMATION
  Report Type: Spontaneous
  Country: US (occurrence: US)
  Receive Date: 20230331
  Receipt Date: 20230501
  Transmission Date: 20230721
  Serious: Yes (Other)
  Sender: FDA-Public Use
  Company Number: US-PFIZER INC-202300138227

PATIENT
  Age: 79 Year
  Sex: Male
  Weight: 122.47 kg

DRUGS (2)
  1. VYNDAMAX [Suspect]
     Active Substance: TAFAMIDIS
     Indication: Amyloidosis
     Dosage: 61 MG, 1X/DAY (AT NIGHT)
     Route: 048
     Dates: start: 20220520
  2. VYNDAMAX [Suspect]
     Active Substance: TAFAMIDIS
     Indication: Hyperammonaemia

REACTIONS (4)
  - Weight decreased [Unknown]
  - Illness [Unknown]
  - Discomfort [Unknown]
  - Off label use [Unknown]

NARRATIVE: CASE EVENT DATE: 20220520
